FAERS Safety Report 5863806-8 (Version None)
Quarter: 2008Q3

REPORT INFORMATION
  Report Type: 
  Country: None (occurrence: None)
  Receive Date: 20080827
  Receipt Date: 20080813
  Transmission Date: 20090109
  Serious: Yes (Death)
  Sender: FDA-Public Use
  Company Number: 15508

PATIENT
  Age: 61 Year
  Sex: Male
  Weight: 68.0396 kg

DRUGS (5)
  1. MORPHINE SULFATE [Suspect]
     Indication: CANCER PAIN
     Dosage: 60MG BID ORALLY
     Route: 048
     Dates: start: 20070101, end: 20080813
  2. MORPHINE [Suspect]
  3. MORPHINE [Concomitant]
  4. FLEXERIL [Concomitant]
  5. REGLAN [Concomitant]

REACTIONS (2)
  - DYSPHAGIA [None]
  - PHARMACEUTICAL PRODUCT COMPLAINT [None]
